FAERS Safety Report 5247555-5 (Version None)
Quarter: 2007Q1

REPORT INFORMATION
  Report Type: 
  Country: None (occurrence: None)
  Receive Date: 20070227
  Receipt Date: 20070215
  Transmission Date: 20070707
  Serious: Yes (Other)
  Sender: FDA-Public Use
  Company Number: PHBS2007JP03106

PATIENT
  Age: 59 Year
  Sex: Male

DRUGS (9)
  1. TEGRETOL [Suspect]
     Dosage: 200 MG/DAY
     Route: 048
     Dates: start: 20070130
  2. ALDACTONE [Concomitant]
  3. VASOLAN [Concomitant]
  4. SELBEX [Concomitant]
  5. JUVELA [Concomitant]
  6. ALINAMIN F [Concomitant]
  7. ALLOPURINOL [Concomitant]
  8. WARFARIN SODIUM [Concomitant]
  9. TOWAMIN [Concomitant]

REACTIONS (2)
  - BLOOD CREATININE INCREASED [None]
  - BLOOD POTASSIUM INCREASED [None]
